FAERS Safety Report 9291017 (Version 1)
Quarter: 2013Q2

REPORT INFORMATION
  Report Type: Spontaneous
  Country: JP (occurrence: None)
  Receive Date: 20130513
  Receipt Date: 20130513
  Transmission Date: 20140414
  Serious: Yes (Hospitalization)
  Sender: FDA-Public Use
  Company Number: FK201301530

PATIENT
  Age: 45 Year
  Sex: Male

DRUGS (3)
  1. FLUOROURACIL [Suspect]
     Indication: COLON CANCER STAGE III
  2. LEUCOVORIN CALCIUM [Suspect]
     Indication: COLON CANCER STAGE III
  3. OXALIPLATIN (MANUFACTURER UNKNOWN) (OXALIPLATIN) (OXALIPLATIN) [Suspect]
     Indication: COLON CANCER STAGE III

REACTIONS (5)
  - Liver injury [None]
  - Neutropenia [None]
  - Cholecystitis [None]
  - Hepatic steatosis [None]
  - Metastases to liver [None]
